FAERS Safety Report 23259309 (Version 1)
Quarter: 2023Q4

REPORT INFORMATION
  Report Type: Spontaneous
  Country: US (occurrence: None)
  Receive Date: 20231204
  Receipt Date: 20231204
  Transmission Date: 20240110
  Serious: Yes (Hospitalization)
  Sender: FDA-Public Use
  Company Number: None

PATIENT
  Age: 75 Year
  Sex: Male

DRUGS (2)
  1. CIPROFLOXACIN [Suspect]
     Active Substance: CIPROFLOXACIN
     Dates: start: 20231018, end: 20231102
  2. RIVAROXABAN [Suspect]
     Active Substance: RIVAROXABAN
     Dates: end: 20231102

REACTIONS (7)
  - Odynophagia [None]
  - Erosive oesophagitis [None]
  - Oesophageal ulcer [None]
  - Helicobacter infection [None]
  - Herpes oesophagitis [None]
  - Cytomegalovirus oesophagitis [None]
  - Gastrooesophageal reflux disease [None]

NARRATIVE: CASE EVENT DATE: 20231102
